FAERS Safety Report 11910423 (Version 2)
Quarter: 2016Q1

REPORT INFORMATION
  Report Type: Report from Study
  Country: GR (occurrence: GR)
  Receive Date: 20160112
  Receipt Date: 20160118
  Transmission Date: 20160526
  Serious: Yes (Hospitalization)
  Sender: FDA-Public Use
  Company Number: GR-AMGEN-GRCNI2015086148

PATIENT
  Age: 62 Year
  Sex: Female

DRUGS (4)
  1. LEUCOVORIN                         /00566701/ [Suspect]
     Active Substance: LEUCOVORIN
     Indication: COLORECTAL CANCER
     Dosage: 400 MG/M2, Q2WK
     Route: 042
     Dates: start: 20150616
  2. PANITUMUMAB [Suspect]
     Active Substance: PANITUMUMAB
     Indication: COLORECTAL CANCER
     Dosage: 6 MG/KG, Q2WK
     Route: 042
     Dates: start: 20150516
  3. IRINOTECAN [Suspect]
     Active Substance: IRINOTECAN
     Indication: COLORECTAL CANCER
     Dosage: 200 MG/M2, Q2WK
     Route: 042
     Dates: start: 20150616
  4. FLUOROURACIL. [Suspect]
     Active Substance: FLUOROURACIL
     Indication: COLORECTAL CANCER
     Dosage: 2400 MG/M2, Q2WK
     Route: 042
     Dates: start: 20150616

REACTIONS (2)
  - Dermatitis [Not Recovered/Not Resolved]
  - Neutropenia [Recovered/Resolved]

NARRATIVE: CASE EVENT DATE: 20150701
